FAERS Safety Report 10580180 (Version 2)
Quarter: 2014Q4

REPORT INFORMATION
  Report Type: Spontaneous
  Country: US (occurrence: US)
  Receive Date: 20141112
  Receipt Date: 20141112
  Transmission Date: 20150529
  Serious: Yes (Hospitalization)
  Sender: FDA-Public Use
  Company Number: US-PFIZER INC-2014292624

PATIENT
  Age: 64 Year
  Sex: Male

DRUGS (1)
  1. LYRICA [Suspect]
     Active Substance: PREGABALIN
     Indication: DYSKINESIA
     Dosage: 50 MG, 2X/DAY
     Dates: start: 20080606

REACTIONS (3)
  - Product use issue [Unknown]
  - Pneumonia aspiration [Unknown]
  - Intentional product use issue [Unknown]
